FAERS Safety Report 25535340 (Version 1)
Quarter: 2025Q3

REPORT INFORMATION
  Report Type: Spontaneous
  Country: US (occurrence: None)
  Receive Date: 20250709
  Receipt Date: 20250709
  Transmission Date: 20251020
  Serious: Yes (Death)
  Sender: FDA-CTU
  Company Number: None

PATIENT
  Age: 55 Year
  Sex: Male

DRUGS (7)
  1. REVLIMID [Suspect]
     Active Substance: LENALIDOMIDE
     Indication: Plasma cell myeloma
     Dosage: FREQUENCY : DAILY;?21 DAYS ON, 7 DAYS OFF
     Route: 048
     Dates: start: 20250522, end: 202506
  2. DEXAMETHASONE [Concomitant]
     Active Substance: DEXAMETHASONE
  3. ATOVAQUONE [Concomitant]
     Active Substance: ATOVAQUONE
  4. BIKTARVY [Concomitant]
     Active Substance: BICTEGRAVIR SODIUM\EMTRICITABINE\TENOFOVIR ALAFENAMIDE FUMARATE
  5. PROCHLORPERAZINE [Concomitant]
     Active Substance: PROCHLORPERAZINE
  6. ACYCLOVIR [Concomitant]
     Active Substance: ACYCLOVIR
  7. vitamion d [Concomitant]

REACTIONS (1)
  - Subdural haematoma [None]

NARRATIVE: CASE EVENT DATE: 20250705
